FAERS Safety Report 20208239 (Version 1)
Quarter: 2021Q4

REPORT INFORMATION
  Report Type: Spontaneous
  Country: US (occurrence: US)
  Receive Date: 20211220
  Receipt Date: 20211220
  Transmission Date: 20220304
  Serious: Yes (Death, Other)
  Sender: FDA-Public Use
  Company Number: US-PURDUE PHARMA-USA-2021-0290019

PATIENT
  Sex: Male

DRUGS (2)
  1. OXYCONTIN [Suspect]
     Active Substance: OXYCODONE HYDROCHLORIDE
     Indication: Pain
     Route: 048
  2. HEROIN [Suspect]
     Active Substance: DIAMORPHINE
     Indication: Product used for unknown indication
     Route: 065

REACTIONS (6)
  - Road traffic accident [Fatal]
  - Completed suicide [Fatal]
  - Drug dependence [Unknown]
  - Substance abuse [Unknown]
  - Feelings of worthlessness [Unknown]
  - Feeling guilty [Unknown]

NARRATIVE: CASE EVENT DATE: 20090101
